FAERS Safety Report 23756097 (Version 1)
Quarter: 2024Q2

REPORT INFORMATION
  Report Type: Spontaneous
  Country: US (occurrence: US)
  Receive Date: 20240418
  Receipt Date: 20240418
  Transmission Date: 20240716
  Serious: Yes (Hospitalization, Other)
  Sender: FDA-Public Use
  Company Number: US-MLMSERVICE-20240328-4916367-1

PATIENT
  Age: 42 Year
  Sex: Male

DRUGS (1)
  1. HALOPERIDOL [Suspect]
     Active Substance: HALOPERIDOL
     Indication: Schizophrenia
     Dosage: 80 MILLIGRAM, SINGLE
     Route: 065

REACTIONS (4)
  - Overdose [Unknown]
  - Pericarditis [Recovering/Resolving]
  - Electrocardiogram QT prolonged [Recovering/Resolving]
  - Sinus tachycardia [Recovering/Resolving]
